FAERS Safety Report 18285475 (Version 2)
Quarter: 2020Q3

REPORT INFORMATION
  Report Type: Report from Study
  Country: US (occurrence: US)
  Receive Date: 20200918
  Receipt Date: 20200928
  Transmission Date: 20201103
  Serious: Yes (Other)
  Sender: FDA-Public Use
  Company Number: NVSC2020US253406

PATIENT
  Age: 73 Year
  Sex: Female

DRUGS (1)
  1. COSENTYX [Suspect]
     Active Substance: SECUKINUMAB
     Indication: PSORIATIC ARTHROPATHY
     Dosage: 300 MG, QW
     Route: 058

REACTIONS (5)
  - Eye pain [Unknown]
  - Headache [Unknown]
  - Psoriatic arthropathy [Unknown]
  - Fungal infection [Unknown]
  - Arthralgia [Unknown]

NARRATIVE: CASE EVENT DATE: 20200908
